FAERS Safety Report 5915944-9 (Version None)
Quarter: 2008Q4

REPORT INFORMATION
  Report Type: 
  Country: None (occurrence: None)
  Receive Date: 20081010
  Receipt Date: 20081002
  Transmission Date: 20090506
  Serious: Yes (Hospitalization)
  Sender: FDA-Public Use
  Company Number: US-GILEAD-2008-0018411

PATIENT
  Sex: Female

DRUGS (13)
  1. LETAIRIS [Suspect]
     Indication: PULMONARY ARTERIAL HYPERTENSION
     Route: 048
     Dates: start: 20080501
  2. HUMULIN R [Concomitant]
  3. QUESTRAN [Concomitant]
  4. SYNTHROID [Concomitant]
  5. VICODIN [Concomitant]
  6. XANAX [Concomitant]
  7. ZOCOR [Concomitant]
  8. LEXAPRO [Concomitant]
  9. PRILOSEC [Concomitant]
  10. EFFEXOR [Concomitant]
  11. VITAMIN D [Concomitant]
  12. ZINC SULFATE [Concomitant]
  13. LOMOTIL [Concomitant]

REACTIONS (3)
  - DYSPNOEA [None]
  - MUSCULAR WEAKNESS [None]
  - SEPSIS [None]
